FAERS Safety Report 16828353 (Version 1)
Quarter: 2019Q4

REPORT INFORMATION
  Report Type: Spontaneous
  Country: US (occurrence: US)
  Receive Date: 20190919
  Receipt Date: 20190919
  Transmission Date: 20200122
  Serious: Yes (Death)
  Sender: FDA-Public Use
  Company Number: None

PATIENT
  Age: 65 Year
  Sex: Female

DRUGS (9)
  1. OMEPRAZOLE CAP 40 MG [Concomitant]
  2. PLAQUENIL [Concomitant]
     Active Substance: HYDROXYCHLOROQUINE SULFATE
  3. ESTRADIOL TAB 0.5 MG [Concomitant]
  4. ENBREL [Suspect]
     Active Substance: ETANERCEPT
     Indication: RHEUMATOID ARTHRITIS
     Dosage: ?          OTHER FREQUENCY:WEEKLY;?
     Route: 058
     Dates: start: 20180109, end: 20190918
  5. IBUPROFEN CAP 200 MG [Concomitant]
  6. PRILOSEC OTC TAB 20 MG [Concomitant]
  7. PREDNISONE PAK 5 MG [Concomitant]
  8. LORAZEPAM TAB 0.5 MG [Concomitant]
  9. PAROXETINE CAP 7.5 MG [Concomitant]

REACTIONS (1)
  - Death [None]

NARRATIVE: CASE EVENT DATE: 20190521
